FAERS Safety Report 25533679 (Version 1)
Quarter: 2025Q3

REPORT INFORMATION
  Report Type: Spontaneous
  Country: US (occurrence: US)
  Receive Date: 20250709
  Receipt Date: 20250709
  Transmission Date: 20251021
  Serious: No
  Sender: MERCK SHARP & DOHME LLC
  Company Number: US-009507513-2297114

PATIENT
  Sex: Female
  Weight: 60.328 kg

DRUGS (17)
  1. SOTATERCEPT [Suspect]
     Active Substance: SOTATERCEPT
  2. SOTATERCEPT [Suspect]
     Active Substance: SOTATERCEPT
  3. SOTATERCEPT [Suspect]
     Active Substance: SOTATERCEPT
  4. SOTATERCEPT [Suspect]
     Active Substance: SOTATERCEPT
  5. TYVASO DPI [Suspect]
     Active Substance: TREPROSTINIL
     Indication: Pulmonary arterial hypertension
     Route: 055
     Dates: start: 20221114
  6. BIFIDOBACTERIUM ANIMALIS LACTIS [Concomitant]
     Active Substance: BIFIDOBACTERIUM ANIMALIS LACTIS
  7. PERCOCET [Concomitant]
     Active Substance: ACETAMINOPHEN\OXYCODONE HYDROCHLORIDE
  8. LETAIRIS [Concomitant]
     Active Substance: AMBRISENTAN
  9. PFIZER-BIONTECH COVID-19 VACCINE [Concomitant]
     Active Substance: TOZINAMERAN
  10. Hair skin nails [Concomitant]
  11. MUCINEX [Concomitant]
     Active Substance: GUAIFENESIN
  12. BORIC ACID [Concomitant]
     Active Substance: BORIC ACID
  13. BUMETANIDE [Concomitant]
     Active Substance: BUMETANIDE
  14. KLONOPIN [Concomitant]
     Active Substance: CLONAZEPAM
  15. TRINTELLIX [Concomitant]
     Active Substance: VORTIOXETINE HYDROBROMIDE
  16. WELLBUTRIN XL [Concomitant]
     Active Substance: BUPROPION HYDROCHLORIDE
  17. VITAMINS [Concomitant]
     Active Substance: VITAMINS

REACTIONS (2)
  - Fatigue [Unknown]
  - Heavy menstrual bleeding [Unknown]
